FAERS Safety Report 5571336-6 (Version None)
Quarter: 2007Q4

REPORT INFORMATION
  Report Type: 
  Country: None (occurrence: None)
  Receive Date: 20071221
  Receipt Date: 20070926
  Transmission Date: 20080405
  Serious: No
  Sender: FDA-Public Use
  Company Number: A0666350A

PATIENT
  Age: 54 Year
  Sex: Male
  Weight: 72.7 kg

DRUGS (2)
  1. FLUTICASONE PROPIONATE [Suspect]
     Route: 045
  2. NO CONCURRENT MEDICATIONS [Concomitant]

REACTIONS (2)
  - DRUG INEFFECTIVE [None]
  - PHARMACEUTICAL PRODUCT COMPLAINT [None]
